FAERS Safety Report 5229153-2 (Version None)
Quarter: 2007Q1

REPORT INFORMATION
  Report Type: 
  Country: None (occurrence: None)
  Receive Date: 20061201
  Receipt Date: 20061010
  Transmission Date: 20070707
  Serious: No
  Sender: FDA-Public Use
  Company Number: US200610002600

PATIENT
  Sex: Female

DRUGS (2)
  1. CYMBALTA [Suspect]
     Dosage: 20 MG, 2/D; 60 MG
     Dates: start: 20060905, end: 20060911
  2. CYMBALTA [Suspect]
     Dosage: 20 MG, 2/D; 60 MG
     Dates: start: 20060912, end: 20061110

REACTIONS (1)
  - PARANOIA [None]
